FAERS Safety Report 7100590-4 (Version None)
Quarter: 2010Q4

REPORT INFORMATION
  Report Type: 
  Country: None (occurrence: None)
  Receive Date: 20101113
  Receipt Date: 20100219
  Transmission Date: 20110411
  Serious: No
  Sender: FDA-Public Use
  Company Number: US-ALLERGAN-1002235US

PATIENT
  Sex: Female

DRUGS (2)
  1. BOTOX COSMETIC [Suspect]
     Indication: SKIN WRINKLING
     Dosage: 18 UNITS, SINGLE
     Dates: start: 20100211, end: 20100211
  2. VOLTAREN [Concomitant]

REACTIONS (2)
  - CONTUSION [None]
  - EYELID OEDEMA [None]
